FAERS Safety Report 20018255 (Version 2)
Quarter: 2021Q4

REPORT INFORMATION
  Report Type: Other
  Country: CA (occurrence: None)
  Receive Date: 20211101
  Receipt Date: 20211102
  Transmission Date: 20220303
  Serious: Yes (Other)
  Sender: FDA-Public Use
  Company Number: CA-ROCHE-1657807

PATIENT
  Age: 54 Year
  Sex: Male

DRUGS (23)
  1. RITUXAN [Suspect]
     Active Substance: RITUXIMAB
     Indication: Polymyositis
     Route: 042
     Dates: start: 20151105, end: 20151127
  2. RITUXAN [Suspect]
     Active Substance: RITUXIMAB
     Dosage: FOUR WEEK COURSE?NEXT INFUSION: 26/MAY/2016
     Route: 042
     Dates: start: 20160505, end: 20160526
  3. RITUXAN [Suspect]
     Active Substance: RITUXIMAB
     Dosage: ONCE WEEKLY FOR 4 WEEKS
     Route: 042
     Dates: start: 20161110
  4. RITUXAN [Suspect]
     Active Substance: RITUXIMAB
     Dosage: INFUSION 21
     Route: 042
     Dates: start: 20180223
  5. RITUXAN [Suspect]
     Active Substance: RITUXIMAB
     Dosage: INFUSION 21
     Route: 042
     Dates: start: 20190305
  6. RITUXAN [Suspect]
     Active Substance: RITUXIMAB
     Dosage: FOUR DOSE COURSES, NO PIRS AVAILABLE FROM 04-APR- 2017 UNTIL 15-MAR-2018
     Route: 042
     Dates: start: 20180824
  7. RITUXAN [Suspect]
     Active Substance: RITUXIMAB
     Route: 042
     Dates: start: 20190719, end: 20190809
  8. RITUXAN [Suspect]
     Active Substance: RITUXIMAB
     Route: 042
     Dates: start: 20191211, end: 20200109
  9. RITUXAN [Suspect]
     Active Substance: RITUXIMAB
     Route: 042
     Dates: start: 20200603, end: 20200626
  10. RITUXAN [Suspect]
     Active Substance: RITUXIMAB
     Route: 042
     Dates: start: 20201028
  11. RITUXAN [Suspect]
     Active Substance: RITUXIMAB
     Route: 042
     Dates: start: 20190221, end: 20190311
  12. RITUXAN [Suspect]
     Active Substance: RITUXIMAB
     Route: 042
     Dates: start: 20170404, end: 20190315
  13. RITUXAN [Suspect]
     Active Substance: RITUXIMAB
     Route: 042
     Dates: start: 20210318, end: 20210409
  14. RITUXAN [Suspect]
     Active Substance: RITUXIMAB
     Route: 042
     Dates: start: 20211020
  15. INFLUENZA VIRUS VACCINE [Suspect]
     Active Substance: INFLUENZA VIRUS VACCINE
     Indication: Product used for unknown indication
     Route: 065
  16. DIPHENHYDRAMINE [Concomitant]
     Active Substance: DIPHENHYDRAMINE
     Indication: Premedication
     Route: 048
     Dates: start: 20151105
  17. ACETAMINOPHEN [Concomitant]
     Active Substance: ACETAMINOPHEN
     Indication: Premedication
     Route: 048
     Dates: start: 20151105
  18. METHYLPREDNISOLONE [Concomitant]
     Active Substance: METHYLPREDNISOLONE
     Indication: Premedication
     Route: 042
     Dates: start: 20151105
  19. CORTISONE [Concomitant]
     Active Substance: CORTISONE
  20. PLAQUENIL [Concomitant]
     Active Substance: HYDROXYCHLOROQUINE SULFATE
  21. LISINOPRIL [Concomitant]
     Active Substance: LISINOPRIL
  22. IMURAN [Concomitant]
     Active Substance: AZATHIOPRINE
  23. VENTOLIN [Concomitant]
     Active Substance: ALBUTEROL SULFATE

REACTIONS (49)
  - Diarrhoea [Recovering/Resolving]
  - Haemoptysis [Unknown]
  - Diabetes mellitus [Not Recovered/Not Resolved]
  - Infusion related reaction [Unknown]
  - Dizziness [Unknown]
  - Eye infection [Not Recovered/Not Resolved]
  - Feeling hot [Recovered/Resolved]
  - Erythema [Recovering/Resolving]
  - Lip swelling [Recovered/Resolved]
  - Hypoaesthesia [Recovered/Resolved]
  - Paraesthesia oral [Recovering/Resolving]
  - Hypoaesthesia oral [Recovered/Resolved]
  - Hot flush [Recovering/Resolving]
  - Myalgia [Unknown]
  - Nausea [Unknown]
  - Hypoaesthesia oral [Not Recovered/Not Resolved]
  - Asthenia [Not Recovered/Not Resolved]
  - Myalgia [Not Recovered/Not Resolved]
  - Rash [Recovered/Resolved]
  - Pharyngeal paraesthesia [Recovered/Resolved]
  - Cough [Unknown]
  - Oxygen saturation decreased [Recovered/Resolved]
  - Burning sensation [Recovered/Resolved]
  - Throat irritation [Recovered/Resolved]
  - Hypoaesthesia oral [Not Recovered/Not Resolved]
  - Hypotension [Unknown]
  - Muscular weakness [Not Recovered/Not Resolved]
  - Pain in extremity [Not Recovered/Not Resolved]
  - Tremor [Not Recovered/Not Resolved]
  - Blood pressure systolic increased [Unknown]
  - Feeling hot [Unknown]
  - Erythema [Unknown]
  - Fatigue [Unknown]
  - Erythema [Unknown]
  - Pneumonia [Not Recovered/Not Resolved]
  - Cough [Not Recovered/Not Resolved]
  - Pain [Recovering/Resolving]
  - Sinusitis [Recovered/Resolved]
  - Oxygen saturation decreased [Unknown]
  - Blood pressure systolic abnormal [Unknown]
  - Ear infection [Recovered/Resolved]
  - Drug hypersensitivity [Unknown]
  - Folliculitis [Recovering/Resolving]
  - Blood pressure diastolic decreased [Unknown]
  - Blood pressure diastolic abnormal [Unknown]
  - Off label use [Unknown]
  - Infusion related reaction [Unknown]
  - Sepsis [Unknown]
  - Respiratory rate increased [Unknown]

NARRATIVE: CASE EVENT DATE: 20151105
